FAERS Safety Report 6069400-0 (Version None)
Quarter: 2009Q1

REPORT INFORMATION
  Report Type: 
  Country: None (occurrence: None)
  Receive Date: 20090206
  Receipt Date: 20090128
  Transmission Date: 20090719
  Serious: Yes (Other)
  Sender: FDA-Public Use
  Company Number: IE-PFIZER INC-2009162224

PATIENT

DRUGS (6)
  1. CARDURA [Suspect]
     Indication: HYPERTENSION
     Route: 048
  2. LISINOPRIL [Concomitant]
  3. ATENOLOL [Concomitant]
  4. FUROSEMIDE [Concomitant]
  5. LIPITOR [Concomitant]
     Dosage: 10 MG, UNK
  6. AMLODIPINE BESILATE [Concomitant]

REACTIONS (2)
  - FLUID RETENTION [None]
  - VISION BLURRED [None]
